FAERS Safety Report 5526987-1 (Version None)
Quarter: 2007Q4

REPORT INFORMATION
  Report Type: 
  Country: None (occurrence: None)
  Receive Date: 20071127
  Receipt Date: 20071113
  Transmission Date: 20080405
  Serious: Yes (Other)
  Sender: FDA-Public Use
  Company Number: US-ELI_LILLY_AND_COMPANY-US200711003657

PATIENT
  Age: 50 Year
  Sex: Female

DRUGS (2)
  1. STRATTERA [Suspect]
     Dosage: 18 MG, UNK
     Dates: start: 20061101, end: 20071001
  2. STRATTERA [Suspect]
     Dosage: 18 MG, UNK
     Dates: start: 20070101, end: 20070101

REACTIONS (4)
  - BACK INJURY [None]
  - CHROMATURIA [None]
  - ROAD TRAFFIC ACCIDENT [None]
  - URINE ODOUR ABNORMAL [None]
